FAERS Safety Report 5721027-3 (Version None)
Quarter: 2008Q2

REPORT INFORMATION
  Report Type: 
  Country: None (occurrence: None)
  Receive Date: 20080429
  Receipt Date: 20080418
  Transmission Date: 20081010
  Serious: Yes (Other)
  Sender: FDA-Public Use
  Company Number: PL-AVENTIS-200813579GDDC

PATIENT
  Age: 24 Year
  Sex: Male
  Weight: 75 kg

DRUGS (4)
  1. TELFAST                            /01314201/ [Suspect]
     Route: 048
  2. TELFAST                            /01314201/ [Suspect]
     Route: 048
  3. ZYRTEC [Suspect]
     Route: 048
     Dates: end: 20080131
  4. DEXAPOLCORT [Concomitant]

REACTIONS (4)
  - DIPLOPIA [None]
  - DIZZINESS [None]
  - DRY MOUTH [None]
  - OVERDOSE [None]
